FAERS Safety Report 21028315 (Version 1)
Quarter: 2022Q2

REPORT INFORMATION
  Report Type: Spontaneous
  Country: US (occurrence: None)
  Receive Date: 20220630
  Receipt Date: 20220630
  Transmission Date: 20220721
  Serious: Yes (Hospitalization)
  Sender: FDA-Public Use
  Company Number: None

PATIENT
  Sex: Female

DRUGS (3)
  1. LAMIVUDINE [Suspect]
     Active Substance: LAMIVUDINE
  2. TIVICAY [Suspect]
     Active Substance: DOLUTEGRAVIR SODIUM
  3. ABACAVIR [Concomitant]
     Active Substance: ABACAVIR

REACTIONS (1)
  - Cerebrovascular accident [None]
